FAERS Safety Report 25046693 (Version 2)
Quarter: 2025Q1

REPORT INFORMATION
  Report Type: Spontaneous
  Country: PR (occurrence: US)
  Receive Date: 20250306
  Receipt Date: 20250317
  Transmission Date: 20250409
  Serious: No
  Sender: SANDOZ
  Company Number: PR-SANDOZ-SDZ2023US077354

PATIENT
  Age: 12 Year
  Sex: Male
  Weight: 49 kg

DRUGS (3)
  1. ARIMIDEX [Suspect]
     Active Substance: ANASTROZOLE
     Indication: Product used for unknown indication
     Dosage: 1 MG, QD
     Route: 048
  2. OMNITROPE [Suspect]
     Active Substance: SOMATROPIN
     Indication: Short stature
     Dosage: 2 MG 2 DOSE
     Route: 058
     Dates: start: 20231204
  3. OMNITROPE [Suspect]
     Active Substance: SOMATROPIN
     Indication: Short stature
     Dosage: 2 MG 2 DOSE
     Route: 058
     Dates: start: 20231204

REACTIONS (3)
  - Circumstance or information capable of leading to medication error [Unknown]
  - Device defective [Unknown]
  - Device physical property issue [Unknown]

NARRATIVE: CASE EVENT DATE: 20231204
